FAERS Safety Report 10258300 (Version 1)
Quarter: 2014Q2

REPORT INFORMATION
  Report Type: Spontaneous
  Country: US (occurrence: None)
  Receive Date: 20140623
  Receipt Date: 20140623
  Transmission Date: 20141212
  Serious: Yes (Hospitalization)
  Sender: FDA-Public Use
  Company Number: None

PATIENT
  Age: 42 Year
  Sex: Female

DRUGS (4)
  1. NEUPOGEN [Suspect]
     Indication: WHITE BLOOD CELL COUNT DECREASED
     Route: 058
  2. PEGASYS PROCLICK [Concomitant]
  3. RIBAPAK [Concomitant]
  4. SOVALDI [Concomitant]

REACTIONS (2)
  - Diarrhoea [None]
  - Dehydration [None]
